FAERS Safety Report 10572998 (Version 1)
Quarter: 2014Q4

REPORT INFORMATION
  Report Type: Spontaneous
  Country: US (occurrence: None)
  Receive Date: 20141106
  Receipt Date: 20141106
  Transmission Date: 20150529
  Serious: Yes (Hospitalization)
  Sender: FDA-Public Use
  Company Number: VAL_03553_2014

PATIENT
  Sex: Female

DRUGS (7)
  1. SODIUM BICARBONATE. [Concomitant]
     Active Substance: SODIUM BICARBONATE
  2. TENORMIN [Concomitant]
     Active Substance: ATENOLOL
  3. FURADANTIN [Concomitant]
     Active Substance: NITROFURANTOIN
  4. ROCALTROL [Suspect]
     Active Substance: CALCITRIOL
     Indication: PRODUCT USED FOR UNKNOWN INDICATION
     Route: 048
  5. CIPROFLOXACIN. [Concomitant]
     Active Substance: CIPROFLOXACIN
  6. NORVASC [Concomitant]
     Active Substance: AMLODIPINE BESYLATE
  7. KEFLEX [Concomitant]
     Active Substance: CEPHALEXIN

REACTIONS (9)
  - Renal impairment [None]
  - Pyelonephritis [None]
  - Constipation [None]
  - Abdominal discomfort [None]
  - Condition aggravated [None]
  - Acute kidney injury [None]
  - Headache [None]
  - Decreased appetite [None]
  - Asthenia [None]
